FAERS Safety Report 20230714 (Version 3)
Quarter: 2022Q1

REPORT INFORMATION
  Report Type: Report from Study
  Country: BR (occurrence: BR)
  Receive Date: 20211227
  Receipt Date: 20220207
  Transmission Date: 20220423
  Serious: Yes (Death, Hospitalization, Other)
  Sender: FDA-Public Use
  Company Number: BR-BoehringerIngelheim-2021-BI-145301

PATIENT
  Age: 78 Year
  Sex: Male
  Weight: 59 kg

DRUGS (10)
  1. OFEV [Suspect]
     Active Substance: NINTEDANIB
     Indication: Pulmonary fibrosis
     Route: 048
     Dates: start: 202111, end: 20211228
  2. XGEVA [Concomitant]
     Active Substance: DENOSUMAB
     Indication: Lung neoplasm malignant
     Route: 058
  3. TADALAFIL [Concomitant]
     Active Substance: TADALAFIL
     Indication: Disorder of sex development
     Route: 048
     Dates: start: 2018
  4. TADALAFIL [Concomitant]
     Active Substance: TADALAFIL
     Indication: Prophylaxis
  5. TADALAFIL [Concomitant]
     Active Substance: TADALAFIL
     Indication: Prostatomegaly
  6. CHONDROITIN SULFATE (BOVINE)\GLUCOSAMINE SULFATE [Concomitant]
     Active Substance: CHONDROITIN SULFATE (BOVINE)\GLUCOSAMINE SULFATE
     Indication: Bone disorder
     Dosage: FOA: SACHET
     Route: 048
     Dates: start: 2017
  7. LACTULONA [Concomitant]
     Indication: Constipation
     Dosage: HALF A GLASS ONCE A DAY
     Route: 048
     Dates: start: 20211123
  8. FLUIMUCIL [Concomitant]
     Active Substance: ACETYLCYSTEINE
     Indication: Cough
     Dosage: FOA: SACHET
     Route: 048
     Dates: start: 20211217
  9. Code?na [Concomitant]
     Indication: Cough
     Route: 048
     Dates: start: 20211123
  10. Metcorten [Concomitant]
     Indication: Cough
     Route: 048
     Dates: start: 20211217

REACTIONS (11)
  - Septic shock [Fatal]
  - Pneumonia [Fatal]
  - Lung neoplasm malignant [Fatal]
  - Emphysema [Not Recovered/Not Resolved]
  - Dyspnoea [Not Recovered/Not Resolved]
  - Pneumonia [Unknown]
  - Multiple organ dysfunction syndrome [Unknown]
  - Depression [Not Recovered/Not Resolved]
  - Constipation [Not Recovered/Not Resolved]
  - Dry skin [Not Recovered/Not Resolved]
  - Lung disorder [Unknown]

NARRATIVE: CASE EVENT DATE: 20211222
